FAERS Safety Report 8684034 (Version 2)
Quarter: 2013Q4

REPORT INFORMATION
  Report Type: Spontaneous
  Country: IE (occurrence: IE)
  Receive Date: 20120726
  Receipt Date: 20131031
  Transmission Date: 20140711
  Serious: Yes (Other)
  Sender: FDA-Public Use
  Company Number: IE-009507513-1207IRL009252

PATIENT
  Age: 35 Year
  Sex: Female
  Weight: 57 kg

DRUGS (2)
  1. ZISPIN [Suspect]
     Dosage: 15 MG, QD
     Dates: start: 2008
  2. LEXAPRO [Concomitant]
     Dosage: 20 MG, UNK

REACTIONS (3)
  - Amnesia [Not Recovered/Not Resolved]
  - Bradyphrenia [Not Recovered/Not Resolved]
  - Confusional state [Not Recovered/Not Resolved]
